FAERS Safety Report 4420506-9 (Version None)
Quarter: 2004Q3

REPORT INFORMATION
  Report Type: 
  Country: None (occurrence: None)
  Receive Date: 20040805
  Receipt Date: 20040805
  Transmission Date: 20050211
  Serious: Yes (Other)
  Sender: FDA-Public Use
  Company Number: None

PATIENT
  Age: 37 Year
  Sex: Male
  Weight: 103.9 kg

DRUGS (10)
  1. FLUNISOLIDE [Suspect]
  2. FEXOFENADINE HCL [Concomitant]
  3. MONTELUKAST NA [Concomitant]
  4. ALBUTEROL [Concomitant]
  5. FLUNISOLIDE [Concomitant]
  6. FLUNISOLIDE/MENTHOL [Concomitant]
  7. PIMECROLIMUS [Concomitant]
  8. AEROCHAMBER [Concomitant]
  9. HYDROCORTISONE [Concomitant]
  10. ACYCLOVIR [Concomitant]

REACTIONS (2)
  - NASAL DISCOMFORT [None]
  - THROAT IRRITATION [None]
